FAERS Safety Report 9790628 (Version 3)
Quarter: 2014Q1

REPORT INFORMATION
  Report Type: Spontaneous
  Country: US (occurrence: US)
  Receive Date: 20131231
  Receipt Date: 20140311
  Transmission Date: 20141002
  Serious: Yes (Hospitalization)
  Sender: FDA-Public Use
  Company Number: US-GLAXOSMITHKLINE-A1054811A

PATIENT
  Age: 89 Year
  Sex: Female

DRUGS (7)
  1. ADVAIR [Suspect]
     Indication: EMPHYSEMA
     Dosage: 1PUFF TWICE PER DAY
     Route: 055
     Dates: start: 2010
  2. WARFARIN [Concomitant]
  3. LOSARTAN [Concomitant]
  4. METOPROLOL [Concomitant]
  5. BAYER ASPIRIN [Concomitant]
  6. OMEPRAZOLE [Concomitant]
  7. CLONAZEPAM [Concomitant]

REACTIONS (6)
  - Device related infection [Unknown]
  - Cardiac pacemaker replacement [Unknown]
  - Dyspnoea [Unknown]
  - Drug administration error [Unknown]
  - Incorrect dosage administered [Unknown]
  - Product quality issue [Unknown]
